FAERS Safety Report 9376128 (Version 1)
Quarter: 2013Q3

REPORT INFORMATION
  Report Type: Spontaneous
  Country: US (occurrence: US)
  Receive Date: 20130701
  Receipt Date: 20130701
  Transmission Date: 20140515
  Serious: No
  Sender: FDA-Public Use
  Company Number: US-009507513-1306USA012423

PATIENT
  Age: 65 Year
  Sex: Female

DRUGS (3)
  1. JANUMET [Suspect]
     Indication: BLOOD GLUCOSE
     Dosage: 50MG/1000MG, BID
     Route: 048
  2. BENADRYL [Concomitant]
  3. AMARYL [Concomitant]

REACTIONS (1)
  - Rash [Recovered/Resolved]
